FAERS Safety Report 7994134-2 (Version None)
Quarter: 2011Q4

REPORT INFORMATION
  Report Type: 
  Country: None (occurrence: None)
  Receive Date: 20111220
  Receipt Date: 20111212
  Transmission Date: 20120403
  Serious: Yes (Hospitalization, Other)
  Sender: FDA-Public Use
  Company Number: US-ELI_LILLY_AND_COMPANY-US201107006543

PATIENT
  Sex: Female
  Weight: 88.889 kg

DRUGS (2)
  1. BYETTA [Suspect]
     Indication: DIABETES MELLITUS
     Dosage: UNK
     Route: 058
     Dates: start: 20090901, end: 20091111
  2. GLUCOPHAGE [Concomitant]
     Indication: DIABETES MELLITUS

REACTIONS (4)
  - RENAL FAILURE [None]
  - RENAL FAILURE ACUTE [None]
  - PANCREATITIS [None]
  - DEHYDRATION [None]
